FAERS Safety Report 4317846-0 (Version None)
Quarter: 2004Q1

REPORT INFORMATION
  Report Type: 
  Country: None (occurrence: None)
  Receive Date: 20040316
  Receipt Date: 20040127
  Transmission Date: 20041129
  Serious: Yes (Death, Hospitalization)
  Sender: FDA-Public Use
  Company Number: 200410355FR

PATIENT
  Age: 30 Year
  Sex: Female
  Weight: 56 kg

DRUGS (7)
  1. LOVENOX [Suspect]
     Indication: THROMBOSIS PROPHYLAXIS
     Route: 058
     Dates: start: 20000410, end: 20000410
  2. BI-PROFENID [Suspect]
     Indication: ENDOMETRITIS
     Route: 048
     Dates: start: 20000408, end: 20000410
  3. PROFENID [Suspect]
     Indication: ENDOMETRITIS
     Route: 042
     Dates: start: 20000403, end: 20000405
  4. ACETAMINOPHEN WITH PROPOXYPHENE HCL TAB [Concomitant]
     Indication: PAIN
     Route: 042
     Dates: start: 20000403, end: 20000410
  5. AUGMENTIN [Concomitant]
     Indication: ENDOMETRITIS
  6. MAALOX [Concomitant]
     Indication: ABDOMINAL PAIN UPPER
     Dates: start: 20000406, end: 20000408
  7. ZANTAC [Concomitant]
     Indication: ABDOMINAL PAIN UPPER
     Dates: start: 20000408, end: 20000410

REACTIONS (4)
  - DEATH [None]
  - FALL [None]
  - HEMIPLEGIA [None]
  - MENINGORRHAGIA [None]
